FAERS Safety Report 7249568-0 (Version None)
Quarter: 2011Q1

REPORT INFORMATION
  Report Type: 
  Country: None (occurrence: None)
  Receive Date: 20110128
  Receipt Date: 20101229
  Transmission Date: 20110831
  Serious: Yes (Hospitalization)
  Sender: FDA-Public Use
  Company Number: IT-BAYER-2010-009223

PATIENT
  Sex: Male

DRUGS (4)
  1. ASPIRIN [Suspect]
     Indication: PROPHYLAXIS
     Dosage: 100 MG, QD
     Route: 048
     Dates: start: 20090101, end: 20101209
  2. MODURETIC 5-50 [Concomitant]
     Dosage: 55 MG, QD
     Route: 048
  3. NAPRILENE [Concomitant]
     Dosage: 5 MG, QD
     Route: 048
  4. BENTELAN [Suspect]
     Indication: BACK PAIN
     Dosage: 1.5 MG, QD
     Route: 030
     Dates: start: 20101203, end: 20101209

REACTIONS (2)
  - ANASTOMOTIC ULCER [None]
  - ANAEMIA [None]
